FAERS Safety Report 6592980-3 (Version None)
Quarter: 2010Q1

REPORT INFORMATION
  Report Type: 
  Country: None (occurrence: None)
  Receive Date: 20100218
  Receipt Date: 20100218
  Transmission Date: 20100710
  Serious: Yes (Disabling)
  Sender: FDA-Public Use
  Company Number: None

PATIENT
  Sex: Female
  Weight: 56.8 kg

DRUGS (1)
  1. LAMICTAL [Suspect]
     Indication: CONVULSION
     Dosage: 25 MG, ESCALATING TO 50 MG DAILY ORAL
     Route: 048
     Dates: start: 20080101

REACTIONS (5)
  - BLINDNESS UNILATERAL [None]
  - HERPES OPHTHALMIC [None]
  - HERPES ZOSTER [None]
  - NERVE INJURY [None]
  - SKIN DISCOLOURATION [None]
